FAERS Safety Report 21088008 (Version 1)
Quarter: 2022Q3

REPORT INFORMATION
  Report Type: Spontaneous
  Country: CN (occurrence: CN)
  Receive Date: 20220715
  Receipt Date: 20220715
  Transmission Date: 20221027
  Serious: Yes (Life-Threatening, Hospitalization, Other)
  Sender: FDA-Public Use
  Company Number: None

PATIENT
  Age: 43 Year
  Sex: Female
  Weight: 33.5 kg

DRUGS (4)
  1. CYCLOPHOSPHAMIDE [Suspect]
     Active Substance: CYCLOPHOSPHAMIDE
     Indication: Breast cancer female
     Dosage: 560 MG, QD, INTRA-PUMP INJECTION, INJECTION, FIRST CYCLE OF CHEMOTHERAPY- CYCLOPHOSPHAMIDE (560 MG)
     Route: 050
     Dates: start: 20220628, end: 20220628
  2. EPIRUBICIN HYDROCHLORIDE [Suspect]
     Active Substance: EPIRUBICIN HYDROCHLORIDE
     Indication: Breast cancer female
     Dosage: 80 MG, QD, INTRA-PUMP INJECTION, FIRST CYCLE OF CHEMOTHERAPY- EPIRUBICIN HYDROCHLORIDE (80 MG) + SOD
     Route: 050
     Dates: start: 20220628, end: 20220628
  3. SODIUM CHLORIDE [Suspect]
     Active Substance: SODIUM CHLORIDE
     Indication: Medication dilution
     Dosage: 100 ML, QD, INTRA-PUMP INJECTION, FIRST CYCLE OF CHEMOTHERAPY- CYCLOPHOSPHAMIDE (560 MG) + SODIUM CH
     Route: 050
     Dates: start: 20220628, end: 20220628
  4. SODIUM CHLORIDE [Suspect]
     Active Substance: SODIUM CHLORIDE
     Dosage: 100 ML, QD, INTRA-PUMP INJECTION, FIRST CYCLE OF CHEMOTHERAPY- EPIRUBICIN HYDROCHLORIDE (80 MG) + SO
     Route: 050
     Dates: start: 20220628, end: 20220628

REACTIONS (2)
  - Critical illness [Recovering/Resolving]
  - Myelosuppression [Recovering/Resolving]

NARRATIVE: CASE EVENT DATE: 20220701
